FAERS Safety Report 9798717 (Version 2)
Quarter: 2015Q3

REPORT INFORMATION
  Report Type: Spontaneous
  Country: US (occurrence: US)
  Receive Date: 20140106
  Receipt Date: 20150806
  Transmission Date: 20151125
  Serious: No
  Sender: FDA-Public Use
  Company Number: US-GILEAD-2010-0029898

PATIENT
  Age: 33 Year
  Sex: Male
  Weight: 121.2 kg

DRUGS (20)
  1. LETAIRIS [Suspect]
     Active Substance: AMBRISENTAN
     Indication: PULMONARY ARTERIAL HYPERTENSION
     Route: 048
     Dates: start: 20081113
  2. VITAMIN C [Concomitant]
     Active Substance: ASCORBIC ACID
  3. GLUCOTROL [Concomitant]
     Active Substance: GLIPIZIDE
  4. TOPROL XL [Concomitant]
     Active Substance: METOPROLOL SUCCINATE
  5. OXYGEN. [Concomitant]
     Active Substance: OXYGEN
  6. ZAROXOLYN [Concomitant]
     Active Substance: METOLAZONE
  7. LASIX [Concomitant]
     Active Substance: FUROSEMIDE
  8. PLAVIX [Concomitant]
     Active Substance: CLOPIDOGREL BISULFATE
  9. PEPCID [Concomitant]
     Active Substance: FAMOTIDINE
  10. MICRO-K [Concomitant]
     Active Substance: POTASSIUM CHLORIDE
  11. AMOXICILLIN. [Concomitant]
     Active Substance: AMOXICILLIN
  12. VITAMIN E [Concomitant]
     Active Substance: .ALPHA.-TOCOPHEROL
  13. IBUPROFEN. [Concomitant]
     Active Substance: IBUPROFEN
  14. VITAMIN B6 [Concomitant]
     Active Substance: PYRIDOXINE HYDROCHLORIDE
  15. ALDACTONE [Concomitant]
     Active Substance: SPIRONOLACTONE
  16. REVATIO [Concomitant]
     Active Substance: SILDENAFIL CITRATE
  17. MULTIVITAMIN [Concomitant]
     Active Substance: VITAMINS
  18. TRICOR [Concomitant]
     Active Substance: FENOFIBRATE
  19. ALLOPURINOL. [Concomitant]
     Active Substance: ALLOPURINOL
  20. LANOXIN [Concomitant]
     Active Substance: DIGOXIN

REACTIONS (1)
  - Parosmia [Unknown]
